FAERS Safety Report 8941921 (Version 3)
Quarter: 2014Q2

REPORT INFORMATION
  Report Type: Spontaneous
  Country: DE (occurrence: DE)
  Receive Date: 20121130
  Receipt Date: 20140613
  Transmission Date: 20141212
  Serious: Yes (Death, Other)
  Sender: FDA-Public Use
  Company Number: DE-AMGEN-DEUSP2012060605

PATIENT
  Sex: Female

DRUGS (5)
  1. XGEVA [Suspect]
     Indication: PRODUCT USED FOR UNKNOWN INDICATION
     Dosage: 120 MG, QMO
     Route: 065
  2. PROLIA [Suspect]
     Indication: PRODUCT USED FOR UNKNOWN INDICATION
     Route: 065
  3. FASLODEX                           /01285001/ [Concomitant]
     Indication: BREAST CANCER
     Dosage: 250 MG, QMO
  4. EXEMESTAN [Concomitant]
  5. AFINITOR [Concomitant]

REACTIONS (3)
  - Death [Fatal]
  - Metastases to liver [Unknown]
  - Liver function test abnormal [Unknown]
